FAERS Safety Report 8285988-3 (Version None)
Quarter: 2012Q2

REPORT INFORMATION
  Report Type: 
  Country: None (occurrence: None)
  Receive Date: 20120416
  Receipt Date: 20120406
  Transmission Date: 20120825
  Serious: Yes (Other)
  Sender: FDA-Public Use
  Company Number: US-AMGEN-USASP2012022067

PATIENT
  Age: 56 Year
  Sex: Female

DRUGS (1)
  1. ENBREL [Suspect]
     Indication: RHEUMATOID ARTHRITIS
     Dosage: 50 MG, QWK
     Dates: start: 20120403

REACTIONS (6)
  - HYPOGAMMAGLOBULINAEMIA [None]
  - VEIN PAIN [None]
  - PALPITATIONS [None]
  - FEELING ABNORMAL [None]
  - FEELING JITTERY [None]
  - DIZZINESS [None]
